FAERS Safety Report 23879017 (Version 2)
Quarter: 2024Q4

REPORT INFORMATION
  Report Type: Spontaneous
  Country: US (occurrence: US)
  Receive Date: 20240521
  Receipt Date: 20241114
  Transmission Date: 20250114
  Serious: Yes (Hospitalization, Other)
  Sender: AMGEN
  Company Number: US-HORIZON THERAPEUTICS-HZN-2023-007346

PATIENT
  Age: 60 Year
  Sex: Male

DRUGS (5)
  1. KRYSTEXXA [Suspect]
     Active Substance: PEGLOTICASE
     Indication: Gout
     Dosage: UNK UNK, Q2WK (IV INFUSION EVERY 2 WEEKS)
     Route: 040
     Dates: start: 202311
  2. METHOTREXATE [Suspect]
     Active Substance: METHOTREXATE
     Indication: Product used for unknown indication
     Dosage: 15 MILLIGRAM, QWK (WEEKLY)
     Route: 042
  3. LEFLUNOMIDE [Suspect]
     Active Substance: LEFLUNOMIDE
     Indication: Product used for unknown indication
     Dosage: UNK
     Route: 065
     Dates: end: 2024
  4. MYCOPHENOLATE MOFETIL [Suspect]
     Active Substance: MYCOPHENOLATE MOFETIL
     Indication: Product used for unknown indication
     Dosage: UNK
     Route: 065
     Dates: end: 2024
  5. SOLU-MEDROL [Concomitant]
     Active Substance: METHYLPREDNISOLONE SODIUM SUCCINATE
     Dosage: UNK

REACTIONS (3)
  - Sepsis [Unknown]
  - Flushing [Recovered/Resolved]
  - Chest discomfort [Recovered/Resolved]

NARRATIVE: CASE EVENT DATE: 20230101
